FAERS Safety Report 23890853 (Version 1)
Quarter: 2024Q2

REPORT INFORMATION
  Report Type: Spontaneous
  Country: US (occurrence: None)
  Receive Date: 20240523
  Receipt Date: 20240523
  Transmission Date: 20240716
  Serious: No
  Sender: FDA-Public Use
  Company Number: None

PATIENT
  Sex: Female

DRUGS (7)
  1. VIGABATRIN [Suspect]
     Active Substance: VIGABATRIN
     Indication: Major depression
  2. FLUOXETINE HYDROCHLORIDE [Concomitant]
     Active Substance: FLUOXETINE HYDROCHLORIDE
  3. REXULTI [Concomitant]
     Active Substance: BREXPIPRAZOLE
  4. CLONAZEPAM [Concomitant]
     Active Substance: CLONAZEPAM
  5. VYVANSE [Concomitant]
     Active Substance: LISDEXAMFETAMINE DIMESYLATE
  6. LAMOTRIGINE [Concomitant]
     Active Substance: LAMOTRIGINE
  7. SPRAVATO [Suspect]
     Active Substance: ESKETAMINE

REACTIONS (1)
  - Mental disorder [None]
